FAERS Safety Report 23056544 (Version 1)
Quarter: 2023Q4

REPORT INFORMATION
  Report Type: Spontaneous
  Country: RS (occurrence: RS)
  Receive Date: 20231011
  Receipt Date: 20231011
  Transmission Date: 20240110
  Serious: Yes (Other)
  Sender: FDA-Public Use
  Company Number: RS-BIOGEN-2023BI01230376

PATIENT
  Age: 33 Year
  Sex: Male

DRUGS (3)
  1. TYSABRI [Suspect]
     Active Substance: NATALIZUMAB
     Indication: Relapsing-remitting multiple sclerosis
     Route: 050
     Dates: start: 202210
  2. KEPPRA [Concomitant]
     Active Substance: LEVETIRACETAM
     Indication: Product used for unknown indication
     Route: 050
  3. LIVOREX FORTE [Concomitant]
     Indication: Product used for unknown indication
     Route: 050

REACTIONS (2)
  - Bronchopulmonary aspergillosis [Unknown]
  - Cerebral venous thrombosis [Unknown]
